FAERS Safety Report 8924422 (Version 1)
Quarter: 2012Q4

REPORT INFORMATION
  Report Type: 
  Country: DK (occurrence: DK)
  Receive Date: 20121126
  Receipt Date: 20121126
  Transmission Date: 20130627
  Serious: Yes (Death)
  Sender: FDA-Public Use
  Company Number: PHHY2012DK100609

PATIENT
  Age: 44 Year
  Sex: Male

DRUGS (2)
  1. OLANZAPINE SANDOZ [Suspect]
     Indication: SCHIZOPHRENIA, PARANOID TYPE
     Dosage: 20 mg, QD
     Route: 048
  2. ZYPREXA [Concomitant]
     Indication: SCHIZOPHRENIA, PARANOID TYPE

REACTIONS (1)
  - Toxicity to various agents [Fatal]
